FAERS Safety Report 17816222 (Version 1)
Quarter: 2020Q2

REPORT INFORMATION
  Report Type: Spontaneous
  Country: US (occurrence: US)
  Receive Date: 20200522
  Receipt Date: 20200522
  Transmission Date: 20200714
  Serious: No
  Sender: FDA-Public Use
  Company Number: US-SA-2020SA132556

PATIENT
  Sex: Female

DRUGS (1)
  1. KEVZARA [Suspect]
     Active Substance: SARILUMAB
     Indication: RHEUMATOID ARTHRITIS
     Dosage: 200 MG, QOW
     Route: 058
     Dates: start: 20200508, end: 20200508

REACTIONS (5)
  - Peripheral swelling [Unknown]
  - Urticaria [Unknown]
  - Feeling hot [Unknown]
  - Pruritus [Unknown]
  - Hypersensitivity [Unknown]
